FAERS Safety Report 4473356-1 (Version None)
Quarter: 2004Q4

REPORT INFORMATION
  Report Type: 
  Country: None (occurrence: None)
  Receive Date: 20041008
  Receipt Date: 20040927
  Transmission Date: 20050328
  Serious: Yes (Hospitalization)
  Sender: FDA-Public Use
  Company Number: 2004-120656-NL

PATIENT
  Age: 70 Year
  Sex: Female

DRUGS (10)
  1. DEXAMETHASONE [Suspect]
     Dosage: 2 MG ORAL
     Route: 048
     Dates: start: 20040825
  2. FLUOROURACIL [Suspect]
     Indication: BREAST CANCER METASTATIC
     Dosage: 950 MG INTRAVENOUS (NOS)
     Route: 042
     Dates: start: 20040813, end: 20040813
  3. CYCLOPHOSPHAMIDE [Suspect]
     Indication: BREAST CANCER METASTATIC
     Dosage: 950 MG INTRAVENOUS (NOS)
     Route: 042
     Dates: start: 20040813, end: 20040813
  4. METHOTREXATE [Suspect]
     Indication: BREAST CANCER METASTATIC
     Dosage: 80 MG INTRAVENOUS NOS
     Route: 042
     Dates: start: 20040813, end: 20040813
  5. AMLODIPINE [Concomitant]
  6. LANSOPRAZOLE [Concomitant]
  7. FRUSEMIDE [Concomitant]
  8. CYCLIZINE [Concomitant]
  9. MORPHINE SULFATE [Concomitant]
  10. WARFARIN SODIUM [Concomitant]

REACTIONS (4)
  - DYSPNOEA [None]
  - FAECES DISCOLOURED [None]
  - GASTROINTESTINAL EROSION [None]
  - PANCYTOPENIA [None]
